FAERS Safety Report 10581123 (Version 1)
Quarter: 2014Q4

REPORT INFORMATION
  Report Type: Spontaneous
  Country: None (occurrence: None)
  Receive Date: 20141112
  Receipt Date: 20141112
  Transmission Date: 20150529
  Serious: No
  Sender: FDA-Public Use
  Company Number: None

PATIENT
  Age: 75 Year
  Sex: Female
  Weight: 69.9 kg

DRUGS (1)
  1. AMIODARONE [Suspect]
     Active Substance: AMIODARONE
     Indication: ARRHYTHMIA
     Dosage: 0.5MG/MIN CONTINUOUS
     Route: 042
     Dates: start: 20141106, end: 20141108

REACTIONS (7)
  - Skin discolouration [None]
  - Blister [None]
  - Skin necrosis [None]
  - Oedema peripheral [None]
  - Soft tissue necrosis [None]
  - Peripheral coldness [None]
  - Injection site extravasation [None]

NARRATIVE: CASE EVENT DATE: 20141111
